FAERS Safety Report 5262301-7 (Version None)
Quarter: 2007Q1

REPORT INFORMATION
  Report Type: 
  Country: None (occurrence: None)
  Receive Date: 20070312
  Receipt Date: 20070227
  Transmission Date: 20070707
  Serious: Yes (Congenital Anomaly)
  Sender: FDA-Public Use
  Company Number: PHFR2007GB00910

PATIENT
  Sex: Male
  Weight: 2.86 kg

DRUGS (4)
  1. CLOBAZAM [Suspect]
     Dosage: MATERNAL DOSE 10MG
     Route: 064
  2. KEPPRA [Suspect]
     Dosage: MATERNAL DOSE 3000MG
     Route: 064
  3. LAMOTRIGINE [Suspect]
     Dosage: MATERNAL 300MG
     Route: 064
  4. CARBAMAZEPINE [Suspect]
     Dosage: MATERNAL DOSE 400MG
     Route: 064

REACTIONS (2)
  - DRUG EXPOSURE DURING PREGNANCY [None]
  - PILONIDAL CYST CONGENITAL [None]
